FAERS Safety Report 5515804-1 (Version None)
Quarter: 2007Q4

REPORT INFORMATION
  Report Type: 
  Country: None (occurrence: None)
  Receive Date: 20071109
  Receipt Date: 20071025
  Transmission Date: 20080405
  Serious: Yes (Hospitalization)
  Sender: FDA-Public Use
  Company Number: 2007JP004863

PATIENT
  Age: 60 Year
  Sex: Female
  Weight: 58 kg

DRUGS (7)
  1. TACROLIMUS [Suspect]
     Indication: RHEUMATOID ARTHRITIS
     Dosage: 3 MG, ORAL; 3 MG, ORAL
     Route: 048
     Dates: start: 20070629, end: 20070705
  2. TACROLIMUS [Suspect]
     Indication: RHEUMATOID ARTHRITIS
     Dosage: 3 MG, ORAL; 3 MG, ORAL
     Route: 048
     Dates: start: 20070727, end: 20070830
  3. METHOTREXATE                                                    TABLET [Concomitant]
  4. LOXONIN                                     (LOXOPROFEN) TABLET [Concomitant]
  5. SEVEN EP                               (ENZYMES NOS) CAPSULE [Concomitant]
  6. MARZULENE S                           (LEVOGLUTAMIDE, SODIUM GUALENATE [Concomitant]
  7. MOHRUS                                        (KETOPROFEN) TAPE [Concomitant]

REACTIONS (2)
  - BONE NEOPLASM [None]
  - VOMITING [None]
